FAERS Safety Report 8425357-6 (Version None)
Quarter: 2012Q2

REPORT INFORMATION
  Report Type: 
  Country: None (occurrence: None)
  Receive Date: 20120611
  Receipt Date: 20120604
  Transmission Date: 20120825
  Serious: No
  Sender: FDA-Public Use
  Company Number: US-BAYER-2012-056851

PATIENT

DRUGS (3)
  1. ALEVE (CAPLET) [Suspect]
     Indication: MIGRAINE
     Route: 048
  2. ACETAMINOPHEN [Concomitant]
     Indication: MIGRAINE
  3. IBUPROFEN [Concomitant]
     Indication: MIGRAINE

REACTIONS (1)
  - MIGRAINE [None]
